FAERS Safety Report 12672259 (Version 1)
Quarter: 2016Q3

REPORT INFORMATION
  Report Type: Spontaneous
  Country: BR (occurrence: BR)
  Receive Date: 20160822
  Receipt Date: 20160822
  Transmission Date: 20161109
  Serious: Yes (Other)
  Sender: FDA-Public Use
  Company Number: BR-PFIZER INC-2016377450

PATIENT
  Age: 54 Year
  Sex: Female

DRUGS (3)
  1. CHAMPIX [Suspect]
     Active Substance: VARENICLINE TARTRATE
     Dosage: UNK
  2. SALBUTAMOL [Concomitant]
     Active Substance: ALBUTEROL
     Dosage: UNK
  3. ALENIA /01479302/ [Concomitant]
     Dosage: UNK

REACTIONS (5)
  - Tobacco user [Unknown]
  - Choking [Unknown]
  - Bronchitis [Unknown]
  - Cough [Unknown]
  - Asthma [Unknown]
